FAERS Safety Report 5892256-3 (Version None)
Quarter: 2008Q3

REPORT INFORMATION
  Report Type: 
  Country: None (occurrence: None)
  Receive Date: 20080919
  Receipt Date: 20080908
  Transmission Date: 20090109
  Serious: Yes (Hospitalization)
  Sender: FDA-Public Use
  Company Number: 2008S1000552

PATIENT
  Age: 60 Year
  Sex: Female

DRUGS (6)
  1. DARVON [Suspect]
     Dosage: ; PO
     Route: 048
  2. DEXTROMETHORPHAN HYDROBROMIDE [Suspect]
     Indication: UPPER RESPIRATORY TRACT INFECTION
  3. ACETAMINOPHEN AND HYDROCODONE BITARTRATE [Suspect]
  4. ATENOLOL [Concomitant]
  5. FUROSEMIDE [Concomitant]
  6. ESOMEPRAZOLE MAGNESIUM [Concomitant]

REACTIONS (13)
  - AGGRESSION [None]
  - AGITATION [None]
  - AMNESTIC DISORDER [None]
  - BLOOD PRESSURE INCREASED [None]
  - DELUSION [None]
  - DRUG SCREEN POSITIVE [None]
  - HALLUCINATION, OLFACTORY [None]
  - HALLUCINATION, VISUAL [None]
  - INCORRECT DOSE ADMINISTERED [None]
  - PARANOIA [None]
  - PSYCHOTIC DISORDER [None]
  - ROAD TRAFFIC ACCIDENT [None]
  - URINARY TRACT INFECTION [None]
